FAERS Safety Report 8344348-7 (Version None)
Quarter: 2012Q2

REPORT INFORMATION
  Report Type: 
  Country: None (occurrence: None)
  Receive Date: 20120508
  Receipt Date: 20120503
  Transmission Date: 20120825
  Serious: Yes (Hospitalization)
  Sender: FDA-Public Use
  Company Number: DE-ABBOTT-12P-062-0932149-00

PATIENT
  Sex: Female

DRUGS (4)
  1. INSULIN [Concomitant]
     Indication: PRODUCT USED FOR UNKNOWN INDICATION
  2. MORPHINE PLASTER [Concomitant]
     Indication: PRODUCT USED FOR UNKNOWN INDICATION
  3. ANALGESIC [Concomitant]
     Indication: PRODUCT USED FOR UNKNOWN INDICATION
  4. HUMIRA [Suspect]
     Indication: CROHN'S DISEASE
     Route: 058
     Dates: start: 20080409

REACTIONS (6)
  - DIARRHOEA [None]
  - INCISIONAL HERNIA [None]
  - HERNIA PAIN [None]
  - FIBROMYALGIA [None]
  - INCISION SITE PAIN [None]
  - VOMITING [None]
